FAERS Safety Report 13633989 (Version 1)
Quarter: 2017Q2

REPORT INFORMATION
  Report Type: Spontaneous
  Country: US (occurrence: US)
  Receive Date: 20170531
  Receipt Date: 20170531
  Transmission Date: 20170830
  Serious: No
  Sender: FDA-Public Use
  Company Number: US-ASTELLAS-1595289

PATIENT
  Sex: Female

DRUGS (4)
  1. TARCEVA [Suspect]
     Active Substance: ERLOTINIB HYDROCHLORIDE
     Indication: LUNG NEOPLASM MALIGNANT
     Route: 048
     Dates: start: 20120405
  2. LYRICA [Concomitant]
     Active Substance: PREGABALIN
  3. INSULIN [Concomitant]
     Active Substance: INSULIN NOS
  4. LASIX [Concomitant]
     Active Substance: FUROSEMIDE

REACTIONS (4)
  - Gastric disorder [Unknown]
  - Hair texture abnormal [Unknown]
  - Decreased appetite [Unknown]
  - Nausea [Unknown]
